FAERS Safety Report 16008326 (Version 1)
Quarter: 2019Q1

REPORT INFORMATION
  Report Type: Other
  Country: GB (occurrence: GB)
  Receive Date: 20190226
  Receipt Date: 20190226
  Transmission Date: 20190418
  Serious: Yes (Hospitalization)
  Sender: FDA-Public Use
  Company Number: GB-B. BRAUN MEDICAL INC.-2063233

PATIENT
  Age: 9 Year
  Sex: Male

DRUGS (6)
  1. NEBULIZED AMIKACIN [Concomitant]
  2. MOXIFLOXACIN. [Concomitant]
     Active Substance: MOXIFLOXACIN
     Route: 048
  3. COTRIMOXAZOLE [Concomitant]
     Active Substance: SULFAMETHOXAZOLE\TRIMETHOPRIM
  4. MEROPENEM FOR INJECTION USP AND SODIUM CHLORIDE INJECTION USP IN THE [Suspect]
     Active Substance: MEROPENEM\SODIUM CHLORIDE
  5. AZITHROMYCIN ANHYDROUS. [Concomitant]
     Active Substance: AZITHROMYCIN ANHYDROUS
  6. CEFOXITIN [Concomitant]
     Active Substance: CEFOXITIN SODIUM

REACTIONS (1)
  - Drug reaction with eosinophilia and systemic symptoms [None]
